FAERS Safety Report 5275392-4 (Version None)
Quarter: 2007Q1

REPORT INFORMATION
  Report Type: 
  Country: None (occurrence: None)
  Receive Date: 20070326
  Receipt Date: 20070313
  Transmission Date: 20070707
  Serious: Yes (Other)
  Sender: FDA-Public Use
  Company Number: PHEH2007US03066

PATIENT
  Sex: Male

DRUGS (1)
  1. TEGRETOL [Suspect]
     Dates: start: 19800101

REACTIONS (1)
  - SPINAL CORD OPERATION [None]
